FAERS Safety Report 9638124 (Version 1)
Quarter: 2013Q4

REPORT INFORMATION
  Report Type: Spontaneous
  Country: US (occurrence: US)
  Receive Date: 20131022
  Receipt Date: 20131022
  Transmission Date: 20140711
  Serious: No
  Sender: FDA-Public Use
  Company Number: US-PFIZER INC-2013299703

PATIENT
  Sex: Female

DRUGS (3)
  1. TIKOSYN [Suspect]
     Indication: ATRIAL TACHYCARDIA
     Dosage: 0.25 MG, 2X/DAY
     Route: 048
     Dates: start: 200204
  2. NYSTATIN [Concomitant]
     Dosage: UNK
  3. PENICILLINE [Concomitant]
     Dosage: UNK

REACTIONS (1)
  - Blepharitis [Not Recovered/Not Resolved]
